FAERS Safety Report 14607017 (Version 1)
Quarter: 2018Q1

REPORT INFORMATION
  Report Type: Spontaneous
  Country: US (occurrence: US)
  Receive Date: 20180307
  Receipt Date: 20180307
  Transmission Date: 20180509
  Serious: Yes (Hospitalization)
  Sender: FDA-Public Use
  Company Number: US-IROKO PHARMACEUTICALS LLC-US-I09001-18-00021

PATIENT
  Age: 33 Year
  Sex: Male

DRUGS (1)
  1. INDOMETHACIN AMBIGUOUS [Suspect]
     Active Substance: INDOMETHACIN
     Indication: PERICARDITIS
     Route: 065

REACTIONS (7)
  - Pericardial excision [Recovered/Resolved]
  - Purulent pericarditis [Recovered/Resolved]
  - Condition aggravated [Recovered/Resolved]
  - Heparin-induced thrombocytopenia [Recovered/Resolved]
  - Off label use [Unknown]
  - Pulmonary embolism [Recovered/Resolved]
  - Pericarditis constrictive [Recovered/Resolved]
